FAERS Safety Report 6739427-1 (Version None)
Quarter: 2010Q2

REPORT INFORMATION
  Report Type: 
  Country: None (occurrence: None)
  Receive Date: 20100518
  Receipt Date: 20100301
  Transmission Date: 20101027
  Serious: Yes (Other)
  Sender: FDA-Public Use
  Company Number: WWISSUE-406

PATIENT
  Sex: Male

DRUGS (2)
  1. DOXYCYCLINE HYCLATE [Suspect]
     Indication: SINUSITIS
     Dosage: 100MG, ORAL
     Route: 048
     Dates: start: 20100210
  2. PREDNISONE 20MG TABLETS [Concomitant]

REACTIONS (1)
  - BLOOD PRESSURE FLUCTUATION [None]
